FAERS Safety Report 23547837 (Version 1)
Quarter: 2024Q1

REPORT INFORMATION
  Report Type: Report from Study
  Country: US (occurrence: US)
  Receive Date: 20240221
  Receipt Date: 20240221
  Transmission Date: 20240410
  Serious: Yes (Hospitalization, Other)
  Sender: FDA-Public Use
  Company Number: US-GILEAD-2024-0662464

PATIENT
  Sex: Female

DRUGS (23)
  1. AZTREONAM LYSINE [Suspect]
     Active Substance: AZTREONAM LYSINE
     Indication: Cystic fibrosis
     Dosage: 1 DOSAGE FORM, TID (RECONSTITUTE WITH 1ML SUPPLIED DILUENT + NEBULIZE 3 TIMES DAILY FOR 28 DAYS ON,
     Route: 055
  2. TRIKAFTA [Concomitant]
     Active Substance: ELEXACAFTOR\IVACAFTOR\TEZACAFTOR
  3. IBUPROFEN [Concomitant]
     Active Substance: IBUPROFEN
  4. AZITHROMYCIN [Concomitant]
     Active Substance: AZITHROMYCIN
  5. CREON [Concomitant]
     Active Substance: PANCRELIPASE AMYLASE\PANCRELIPASE LIPASE\PANCRELIPASE PROTEASE
  6. FLONASE ALLERGY RELIEF [Concomitant]
     Active Substance: FLUTICASONE PROPIONATE
  7. LANSOPRAZOLE [Concomitant]
     Active Substance: LANSOPRAZOLE
  8. AZELASTINE HYDROCHLORIDE [Concomitant]
     Active Substance: AZELASTINE HYDROCHLORIDE
  9. CHOICEFUL VITAMINS [Concomitant]
  10. SODIUM CHLORIDE [Concomitant]
     Active Substance: SODIUM CHLORIDE
  11. MEPHYTON [Concomitant]
     Active Substance: PHYTONADIONE
  12. SPRINTEC [Concomitant]
     Active Substance: ETHINYL ESTRADIOL\NORGESTIMATE
  13. ALBUTEROL [Concomitant]
     Active Substance: ALBUTEROL
  14. XOPENEX [Concomitant]
     Active Substance: LEVALBUTEROL HYDROCHLORIDE
  15. LISINOPRIL [Concomitant]
     Active Substance: LISINOPRIL
  16. CETIRIZINE HYDROCHLORIDE [Concomitant]
     Active Substance: CETIRIZINE HYDROCHLORIDE
  17. DICLOFENAC SODIUM [Concomitant]
     Active Substance: DICLOFENAC\DICLOFENAC SODIUM
  18. MUPIROCIN [Concomitant]
     Active Substance: MUPIROCIN
  19. CALCIUM CITRATE [Concomitant]
     Active Substance: CALCIUM CITRATE
  20. VITAMIN D3 [Concomitant]
     Active Substance: CHOLECALCIFEROL
  21. PROBIOTIC 14 [Concomitant]
  22. ADVAIR HFA [Concomitant]
     Active Substance: FLUTICASONE PROPIONATE\SALMETEROL XINAFOATE
  23. LANTUS SOLOSTAR [Concomitant]
     Active Substance: INSULIN GLARGINE

REACTIONS (4)
  - Pulmonary function test decreased [Recovering/Resolving]
  - Asthenia [Recovering/Resolving]
  - Pain [Recovering/Resolving]
  - Cystic fibrosis lung [Recovering/Resolving]
